FAERS Safety Report 22299549 (Version 3)
Quarter: 2023Q2

REPORT INFORMATION
  Report Type: Spontaneous
  Country: CN (occurrence: CN)
  Receive Date: 20230509
  Receipt Date: 20230512
  Transmission Date: 20230721
  Serious: Yes (Life-Threatening, Hospitalization, Other)
  Sender: FDA-Public Use
  Company Number: CN-MYLANLABS-2023M1044875

PATIENT
  Age: 68 Year
  Sex: Male
  Weight: 75 kg

DRUGS (13)
  1. ATORVASTATIN CALCIUM [Interacting]
     Active Substance: ATORVASTATIN CALCIUM
     Indication: Lipids abnormal
     Dosage: 10 MILLIGRAM, QD
     Route: 065
  2. VORICONAZOLE [Interacting]
     Active Substance: VORICONAZOLE
     Indication: Fungal infection
     Dosage: 200 MILLIGRAM, BID
     Route: 048
     Dates: start: 20211125
  3. VORICONAZOLE [Interacting]
     Active Substance: VORICONAZOLE
     Indication: Fungal infection
     Dosage: 450 MG, 2X/DAY
     Route: 042
  4. VORICONAZOLE [Interacting]
     Active Substance: VORICONAZOLE
     Dosage: 300 MG, 2X/DAY
     Route: 042
  5. PIPERACILLIN SODIUM\TAZOBACTAM SODIUM [Suspect]
     Active Substance: PIPERACILLIN SODIUM\TAZOBACTAM SODIUM
     Indication: Fungal infection
     Dosage: 4.5 G (Q8H)
     Route: 042
  6. CLOPIDOGREL [Suspect]
     Active Substance: CLOPIDOGREL BISULFATE
     Indication: Platelet disorder
     Dosage: 75 MILLIGRAM, QD
     Route: 065
  7. AMILORIDE HYDROCHLORIDE [Suspect]
     Active Substance: AMILORIDE HYDROCHLORIDE
     Indication: Fungal infection
     Dosage: 15 MG, 2X/DAY
     Route: 042
  8. FLUTICASONE PROPIONATE\SALMETEROL XINAFOATE [Suspect]
     Active Substance: FLUTICASONE PROPIONATE\SALMETEROL XINAFOATE
     Indication: Obstructive airways disorder
     Dosage: 1 DOSAGE FORM, BID (50/250) 1 PUFF BID
     Route: 065
  9. PHOSPHOLIPID [Concomitant]
     Active Substance: PHOSPHOLIPID
     Indication: Liver disorder
     Dosage: 456 MILLIGRAM, TID
     Route: 048
  10. VALSARTAN [Concomitant]
     Active Substance: VALSARTAN
     Indication: Hypertension
     Dosage: 80 MILLIGRAM, QD
     Route: 065
  11. GLIMEPIRIDE [Concomitant]
     Active Substance: GLIMEPIRIDE
     Indication: Blood glucose increased
     Dosage: 4 MILLIGRAM, QD
     Route: 065
  12. MIGLITOL [Concomitant]
     Active Substance: MIGLITOL
     Indication: Blood glucose increased
     Dosage: 50 MILLIGRAM, BID
     Route: 065
  13. SITAGLIPTIN PHOSPHATE [Concomitant]
     Active Substance: SITAGLIPTIN PHOSPHATE
     Indication: Blood glucose increased
     Dosage: 100 MILLIGRAM, QD
     Route: 065

REACTIONS (5)
  - Rhabdomyolysis [Unknown]
  - Drug interaction [Unknown]
  - Acute kidney injury [Unknown]
  - Hepatic function abnormal [Unknown]
  - Hypoproteinaemia [Unknown]
